FAERS Safety Report 7530572-X (Version None)
Quarter: 2011Q2

REPORT INFORMATION
  Report Type: 
  Country: None (occurrence: None)
  Receive Date: 20110607
  Receipt Date: 20110524
  Transmission Date: 20111010
  Serious: Yes (Other)
  Sender: FDA-Public Use
  Company Number: IT-JNJFOC-20110511929

PATIENT
  Age: 53 Year
  Sex: Female
  Weight: 63 kg

DRUGS (7)
  1. REMICADE [Suspect]
     Indication: SPONDYLITIS
     Route: 042
     Dates: start: 20100406, end: 20110414
  2. STEROIDS NOS [Concomitant]
     Indication: PREMEDICATION
     Dates: start: 20110414
  3. SPIDIFEN [Concomitant]
     Route: 048
  4. SUCRALFIN [Concomitant]
  5. NERIXIA [Concomitant]
     Indication: OSTEOPOROSIS
     Route: 030
     Dates: start: 20101103
  6. NATECAL D3 [Concomitant]
     Route: 048
  7. ANTIHISTAMINES NOS [Concomitant]
     Indication: PREMEDICATION
     Dates: start: 20110414

REACTIONS (6)
  - CONJUNCTIVAL HYPERAEMIA [None]
  - TACHYCARDIA [None]
  - HYPERTENSION [None]
  - LARYNGEAL OEDEMA [None]
  - DYSPNOEA [None]
  - INFUSION RELATED REACTION [None]
